FAERS Safety Report 7292958-0 (Version None)
Quarter: 2011Q1

REPORT INFORMATION
  Report Type: 
  Country: None (occurrence: None)
  Receive Date: 20110204
  Receipt Date: 20110124
  Transmission Date: 20110831
  Serious: Yes (Other)
  Sender: FDA-Public Use
  Company Number: AUR-APL-2011-00307

PATIENT
  Age: 63 Year
  Sex: Female
  Weight: 57.6068 kg

DRUGS (5)
  1. SYNTHROID [Concomitant]
  2. SIMVASTATIN [Suspect]
     Indication: BLOOD CHOLESTEROL
     Dosage: 40MG - DAILY - ORAL
     Route: 048
     Dates: start: 20110107
  3. PROTONIX [Concomitant]
  4. BONIVA [Concomitant]
  5. LORAZEPAM [Concomitant]

REACTIONS (1)
  - TUMOUR MARKER INCREASED [None]
